FAERS Safety Report 5842026-7 (Version None)
Quarter: 2008Q3

REPORT INFORMATION
  Report Type: 
  Country: None (occurrence: None)
  Receive Date: 20080811
  Receipt Date: 20080811
  Transmission Date: 20090109
  Serious: Yes (Disabling, Other)
  Sender: FDA-Public Use
  Company Number: None

PATIENT
  Age: 61 Year
  Sex: Female
  Weight: 74.8435 kg

DRUGS (1)
  1. LIPITOR [Suspect]
     Indication: BLOOD CHOLESTEROL INCREASED
     Dosage: 10MG INCREASED TO 20MG ONCE A DAY (DURATION: APPROXIMATELY 3-4 YEARS)
     Dates: start: 20000510, end: 20040310

REACTIONS (7)
  - ARTHRITIS [None]
  - GAIT DISTURBANCE [None]
  - LIVER INJURY [None]
  - MOBILITY DECREASED [None]
  - MUSCLE DISORDER [None]
  - MUSCULAR WEAKNESS [None]
  - MYALGIA [None]
